FAERS Safety Report 24444680 (Version 2)
Quarter: 2024Q4

REPORT INFORMATION
  Report Type: Report from Study
  Country: US (occurrence: US)
  Receive Date: 20241016
  Receipt Date: 20241017
  Transmission Date: 20250115
  Serious: No
  Sender: ROCHE
  Company Number: US-ROCHE-2846992

PATIENT
  Age: 47 Year
  Sex: Female

DRUGS (3)
  1. RITUXAN [Suspect]
     Active Substance: RITUXIMAB
     Indication: Arteritis
     Dosage: STRENGTH 500 MG, 1000 MG IV AT WEEK 0 AND 2 REPEAT 4 MONTHS, ANTICIPATED DATE OF TREATMENT: 03/23/20
     Route: 042
  2. RITUXAN [Suspect]
     Active Substance: RITUXIMAB
     Indication: Product used for unknown indication
     Route: 042
     Dates: start: 20210604
  3. RITUXAN [Suspect]
     Active Substance: RITUXIMAB
     Dosage: 500 MG SINGLE-USE VIAL
     Route: 042
     Dates: start: 20210607, end: 20210607

REACTIONS (2)
  - Off label use [Unknown]
  - No adverse event [Unknown]
